FAERS Safety Report 7207354-1 (Version None)
Quarter: 2011Q1

REPORT INFORMATION
  Report Type: 
  Country: None (occurrence: None)
  Receive Date: 20110103
  Receipt Date: 20101222
  Transmission Date: 20110831
  Serious: Yes (Life-Threatening, Hospitalization)
  Sender: FDA-Public Use
  Company Number: CH-PFIZER INC-CH-WYE-G06624210

PATIENT
  Age: 38 Year
  Sex: Male
  Weight: 113 kg

DRUGS (21)
  1. VENLAFAXINE HCL [Suspect]
     Dosage: UNK
     Route: 065
     Dates: start: 20100101
  2. TEMESTA [Suspect]
     Dosage: 1 MG, 1X/DAY
     Route: 048
     Dates: start: 20100619, end: 20100624
  3. LITHIOFOR [Suspect]
     Dosage: 330-660 MG, PER DAY
     Route: 048
     Dates: start: 20100519, end: 20100524
  4. LITHIOFOR [Suspect]
     Dosage: 990 MG, 1X/DAY
     Route: 048
     Dates: start: 20100525, end: 20100624
  5. SEROQUEL [Concomitant]
     Dosage: UNK
     Route: 065
     Dates: start: 20100101
  6. TEMESTA [Suspect]
     Dosage: 3.5 MG, 1X/DAY
     Route: 048
     Dates: start: 20100612, end: 20100616
  7. FRAXIPARINE [Concomitant]
     Dosage: UNK
     Route: 065
     Dates: start: 20100525, end: 20100610
  8. VENLAFAXINE HCL [Suspect]
     Dosage: 150 MG, 1X/DAY
     Route: 048
     Dates: start: 20100526, end: 20100624
  9. PALIPERIDONE [Suspect]
     Dosage: 3 MG, 1X/DAY
     Route: 048
     Dates: start: 20100617, end: 20100622
  10. NOZINAN [Concomitant]
     Dosage: UNK
     Route: 065
     Dates: start: 20100101, end: 20100616
  11. LYRICA [Suspect]
     Dosage: 300 MG, 1X/DAY
     Route: 048
     Dates: start: 20100619, end: 20100624
  12. VENLAFAXINE HCL [Suspect]
     Dosage: 150-300 MG, PER DAY
     Route: 048
     Dates: start: 20090923, end: 20100401
  13. VENLAFAXINE HCL [Suspect]
     Dosage: 375 MG, 1X/DAY
     Route: 048
     Dates: start: 20100402, end: 20100525
  14. WELLBUTRIN [Suspect]
     Dosage: 300 MG, 1X/DAY
     Dates: start: 20100531, end: 20100624
  15. PALIPERIDONE [Suspect]
     Dosage: 6 MG, 1X/DAY
     Route: 048
     Dates: start: 20100623
  16. LYRICA [Suspect]
     Dosage: 450 MG, 1X/DAY
     Route: 048
     Dates: start: 20100402, end: 20100618
  17. TEMESTA [Suspect]
     Dosage: 4.5 TO 7.5 MG, PER DAY
     Route: 048
     Dates: start: 20100512, end: 20100611
  18. WELLBUTRIN [Suspect]
     Dosage: 150 MG, 1X/DAY
     Route: 048
     Dates: start: 20100527, end: 20100530
  19. SEROQUEL [Concomitant]
     Dosage: UNK
     Route: 065
     Dates: start: 20100101, end: 20100525
  20. TEMESTA [Suspect]
     Dosage: 2.5 MG, 1X/DAY
     Route: 048
     Dates: start: 20100617, end: 20100618
  21. PANTOZOL [Concomitant]
     Dosage: UNK
     Route: 048
     Dates: start: 20100617, end: 20100624

REACTIONS (16)
  - EMBOLISM ARTERIAL [None]
  - SEDATION [None]
  - MALAISE [None]
  - MAJOR DEPRESSION [None]
  - DIZZINESS [None]
  - FATIGUE [None]
  - SUICIDE ATTEMPT [None]
  - CONDITION AGGRAVATED [None]
  - PULMONARY EMBOLISM [None]
  - TACHYCARDIA [None]
  - ARTERIAL THROMBOSIS [None]
  - PERIPHERAL COLDNESS [None]
  - PERIPHERAL ISCHAEMIA [None]
  - BLOOD CREATININE INCREASED [None]
  - SUICIDAL IDEATION [None]
  - ATRIAL SEPTAL DEFECT [None]
